FAERS Safety Report 13839126 (Version 1)
Quarter: 2017Q3

REPORT INFORMATION
  Report Type: Spontaneous
  Country: US (occurrence: US)
  Receive Date: 20170806
  Receipt Date: 20170806
  Transmission Date: 20171127
  Serious: Yes (Other)
  Sender: FDA-Public Use
  Company Number: None

PATIENT
  Age: 37 Year
  Sex: Female
  Weight: 49.5 kg

DRUGS (4)
  1. EARTH VALLEY VITAMIN D3 [Concomitant]
  2. AVIANE (BIRTH CONTROL) [Concomitant]
  3. UP AND UP (TARGET) WOMEN^S MULTIVITAMIN GUMMIES [Concomitant]
  4. LEVOFLOXACIN. [Suspect]
     Active Substance: LEVOFLOXACIN
     Indication: TINNITUS
     Dosage: ?          QUANTITY:1 TABLET(S);?
     Route: 048
     Dates: start: 20170712, end: 20170725

REACTIONS (2)
  - Initial insomnia [None]
  - Insomnia [None]

NARRATIVE: CASE EVENT DATE: 20170712
